FAERS Safety Report 8499912-1 (Version None)
Quarter: 2012Q3

REPORT INFORMATION
  Report Type: 
  Country: None (occurrence: None)
  Receive Date: 20120710
  Receipt Date: 20120706
  Transmission Date: 20120928
  Serious: Yes (Life-Threatening, Hospitalization)
  Sender: FDA-Public Use
  Company Number: PHHY2012DE054277

PATIENT
  Age: 76 Year
  Sex: Male

DRUGS (6)
  1. ACETYLSALICYLIC ACID SRT [Concomitant]
     Indication: MYOCARDIAL INFARCTION
     Dosage: 100 MG, PER DAY
     Route: 048
     Dates: start: 20050101
  2. RAMIPRIL [Concomitant]
     Dosage: 2.5 MG, PER DAY
     Route: 048
  3. FLUVASTATIN SODIUM [Suspect]
     Indication: MYOCARDIAL INFARCTION
     Dosage: 80 MG PER DAY
     Route: 048
     Dates: start: 20050101
  4. TAMSULOSIN HYDROCHLORIDE [Concomitant]
     Indication: BENIGN PROSTATIC HYPERPLASIA
     Dosage: 0.4 MG, PER DAY
     Route: 048
     Dates: start: 20080101
  5. BISOPROLOL FUMARATE [Concomitant]
     Indication: MYOCARDIAL INFARCTION
     Dosage: 2.5 MG, PER DAY
     Route: 048
     Dates: start: 20050101
  6. RAMIPRIL [Concomitant]
     Indication: MYOCARDIAL INFARCTION
     Dosage: 5 MG, PER DAY
     Route: 048
     Dates: start: 20050101

REACTIONS (2)
  - B-CELL LYMPHOMA [None]
  - NON-HODGKIN'S LYMPHOMA [None]
